FAERS Safety Report 8099951-9 (Version None)
Quarter: 2012Q1

REPORT INFORMATION
  Report Type: 
  Country: None (occurrence: None)
  Receive Date: 20120129
  Receipt Date: 20111128
  Transmission Date: 20120608
  Serious: No
  Sender: FDA-Public Use
  Company Number: US-ABBOTT-11P-163-0878391-00

PATIENT
  Age: 54 Year
  Sex: Female

DRUGS (10)
  1. NOVOLIN R [Concomitant]
     Indication: PRODUCT USED FOR UNKNOWN INDICATION
     Dosage: SLIDING SCALE
  2. EXFORGE [Concomitant]
     Indication: HYPERTENSION
     Dosage: 320/10 MG PO QD
     Route: 048
  3. LOMOTIL [Concomitant]
     Indication: DIARRHOEA
  4. LANTUS [Concomitant]
     Indication: DIABETES MELLITUS
  5. PROTONIX [Concomitant]
     Indication: PRODUCT USED FOR UNKNOWN INDICATION
  6. HUMIRA [Suspect]
     Indication: CROHN'S DISEASE
     Dates: start: 20111123
  7. ASACOL [Concomitant]
     Indication: PRODUCT USED FOR UNKNOWN INDICATION
  8. PREDNISONE TAB [Concomitant]
     Indication: PRODUCT USED FOR UNKNOWN INDICATION
  9. METFORMIN HCL [Concomitant]
     Indication: PRODUCT USED FOR UNKNOWN INDICATION
     Route: 048
  10. MEGACE [Concomitant]
     Indication: APPETITE DISORDER

REACTIONS (6)
  - LOCAL SWELLING [None]
  - PAIN [None]
  - ERYTHEMA [None]
  - FISTULA DISCHARGE [None]
  - SWELLING [None]
  - ABSCESS [None]
